FAERS Safety Report 19795884 (Version 3)
Quarter: 2022Q2

REPORT INFORMATION
  Report Type: Spontaneous
  Country: US (occurrence: US)
  Receive Date: 20210907
  Receipt Date: 20220429
  Transmission Date: 20220721
  Serious: No
  Sender: FDA-Public Use
  Company Number: US-LUPIN PHARMACEUTICALS INC.-2021-16422

PATIENT
  Sex: Male
  Weight: 95.238 kg

DRUGS (2)
  1. ALBUTEROL SULFATE [Suspect]
     Active Substance: ALBUTEROL SULFATE
     Indication: Dyspnoea
     Dosage: UNK UNK, PRN (AS NEEDED) (5 INHALERS)
     Dates: start: 2021
  2. ALBUTEROL SULFATE [Suspect]
     Active Substance: ALBUTEROL SULFATE
     Dosage: UNK UNK, PRN (AS NEEDED) (SIXTH INHALER)
     Dates: start: 2021

REACTIONS (2)
  - Device delivery system issue [Unknown]
  - No adverse event [Unknown]

NARRATIVE: CASE EVENT DATE: 20210101
